FAERS Safety Report 8840634 (Version 1)
Quarter: 2012Q4

REPORT INFORMATION
  Report Type: 
  Country: US (occurrence: US)
  Receive Date: 20121015
  Receipt Date: 20121015
  Transmission Date: 20130627
  Serious: Yes (Other)
  Sender: FDA-Public Use
  Company Number: US-ROCHE-1140373

PATIENT
  Sex: Male

DRUGS (4)
  1. NUTROPIN AQ [Suspect]
     Indication: HYPOPITUITARISM
     Route: 065
  2. NUTROPIN AQ [Suspect]
     Route: 065
  3. SYNTHROID [Concomitant]
     Route: 065
  4. DEPAKOTE [Concomitant]

REACTIONS (2)
  - Convulsion [Unknown]
  - Exostosis [Unknown]
